FAERS Safety Report 14889959 (Version 2)
Quarter: 2021Q4

REPORT INFORMATION
  Report Type: Report from Study
  Country: US (occurrence: None)
  Receive Date: 20180514
  Receipt Date: 20211101
  Transmission Date: 20220303
  Serious: Yes (Death, Hospitalization)
  Sender: FDA-Public Use
  Company Number: US-ROCHE-2091216

PATIENT
  Age: 73 Year
  Sex: Male
  Weight: 86 kg

DRUGS (3)
  1. ATEZOLIZUMAB [Suspect]
     Active Substance: ATEZOLIZUMAB
     Indication: Colorectal cancer metastatic
     Dosage: DATE OF LAST DOSE ADMINISTRATION: 05/MAR/2018.
     Route: 042
     Dates: start: 20180122
  2. BEVACIZUMAB [Suspect]
     Active Substance: BEVACIZUMAB
     Indication: Colorectal cancer metastatic
     Dosage: DATE OF LAST DOSE (674.25 MG) ADMINISTRATION: 05/MAR/2018.
     Route: 042
     Dates: start: 20180122
  3. CAPECITABINE [Suspect]
     Active Substance: CAPECITABINE
     Indication: Colorectal cancer metastatic
     Dosage: DATE OF LAST DOSE ADMINISTRATION: 12/MAR/2018.
     Route: 048
     Dates: start: 20180122

REACTIONS (2)
  - Intestinal metastasis [Fatal]
  - Pleural effusion [Not Recovered/Not Resolved]

NARRATIVE: CASE EVENT DATE: 20180312
